FAERS Safety Report 4759366-5 (Version None)
Quarter: 2005Q3

REPORT INFORMATION
  Report Type: 
  Country: None (occurrence: None)
  Receive Date: 20050831
  Receipt Date: 20050823
  Transmission Date: 20060218
  Serious: Yes (Death, Hospitalization, Other)
  Sender: FDA-Public Use
  Company Number: 163-20785-05030542

PATIENT
  Age: 75 Year
  Sex: Male
  Weight: 96.6162 kg

DRUGS (1)
  1. THALOMID [Suspect]
     Indication: MULTIPLE MYELOMA
     Dosage: 200 MG-800 MG, DAILY, ORAL
     Route: 048
     Dates: start: 20030201, end: 20051001

REACTIONS (10)
  - DEEP VEIN THROMBOSIS [None]
  - DEPENDENCE ON ENABLING MACHINE OR DEVICE [None]
  - DIALYSIS [None]
  - DISEASE PROGRESSION [None]
  - HAEMOGLOBIN DECREASED [None]
  - MULTIPLE MYELOMA [None]
  - OEDEMA [None]
  - OEDEMA PERIPHERAL [None]
  - RENAL FAILURE [None]
  - SPINAL CORD COMPRESSION [None]
